FAERS Safety Report 4689649-9 (Version None)
Quarter: 2005Q2

REPORT INFORMATION
  Report Type: 
  Country: None (occurrence: None)
  Receive Date: 20050608
  Receipt Date: 20050303
  Transmission Date: 20051028
  Serious: No
  Sender: FDA-Public Use
  Company Number: 2005-BP-03534BP

PATIENT
  Age: 74 Year
  Sex: Male
  Weight: 121.4 kg

DRUGS (11)
  1. SPIRIVA [Suspect]
     Indication: CHRONIC OBSTRUCTIVE PULMONARY DISEASE
     Dosage: 18 MCG (18 MCG, QD), IH
     Route: 055
     Dates: start: 20041001, end: 20041101
  2. K-DUR 10 [Concomitant]
  3. HYTRIN [Concomitant]
  4. AMIODARONE [Concomitant]
  5. DIOVAN [Concomitant]
  6. LASIX [Concomitant]
  7. COREG [Concomitant]
  8. LEVOTHROID [Concomitant]
  9. NEXIUM [Concomitant]
  10. AMBIEN [Concomitant]
  11. ZOCOR [Concomitant]

REACTIONS (1)
  - URINARY RETENTION [None]
